FAERS Safety Report 9072767 (Version 1)
Quarter: 2013Q1

REPORT INFORMATION
  Report Type: Report from Study
  Country: None (occurrence: US)
  Receive Date: 20130128
  Receipt Date: 20130128
  Transmission Date: 20140127
  Serious: No
  Sender: FDA-Public Use
  Company Number: US-ABBOTT-12P-163-0917281-00

PATIENT
  Age: 54 Year
  Sex: Female

DRUGS (6)
  1. HUMIRA 40 MG/0.8 ML PEN [Suspect]
     Indication: RHEUMATOID ARTHRITIS
     Dates: start: 20120313
  2. THEOSPORIN [Concomitant]
     Indication: ILL-DEFINED DISORDER
     Dosage: 1/2 TAB A DAY
  3. GABAPENTIN [Concomitant]
     Indication: PRODUCT USED FOR UNKNOWN INDICATION
     Dosage: 2 TABS PER DAY
  4. FLEXERIL [Concomitant]
     Indication: PRODUCT USED FOR UNKNOWN INDICATION
  5. OMEPRAZOLE [Concomitant]
     Indication: GASTROOESOPHAGEAL REFLUX DISEASE
     Route: 048
  6. CELEBREX [Concomitant]
     Indication: RHEUMATOID ARTHRITIS

REACTIONS (3)
  - Inappropriate schedule of drug administration [Recovered/Resolved]
  - Injection site pain [Recovered/Resolved]
  - Injection site extravasation [Unknown]
